FAERS Safety Report 17809633 (Version 2)
Quarter: 2020Q2

REPORT INFORMATION
  Report Type: Report from Study
  Country: US (occurrence: US)
  Receive Date: 20200520
  Receipt Date: 20200622
  Transmission Date: 20200714
  Serious: Yes (Other)
  Sender: FDA-Public Use
  Company Number: NVSC2020US136877

PATIENT
  Sex: Female

DRUGS (1)
  1. COSENTYX [Suspect]
     Active Substance: SECUKINUMAB
     Indication: PRODUCT USED FOR UNKNOWN INDICATION
     Dosage: UNK
     Route: 065

REACTIONS (6)
  - Haemorrhage [Unknown]
  - Immunosuppression [Unknown]
  - Movement disorder [Unknown]
  - Scratch [Unknown]
  - Neoplasm malignant [Unknown]
  - Neuropathy peripheral [Unknown]
